FAERS Safety Report 8228374-4 (Version None)
Quarter: 2012Q1

REPORT INFORMATION
  Report Type: 
  Country: None (occurrence: None)
  Receive Date: 20120322
  Receipt Date: 20110819
  Transmission Date: 20120608
  Serious: Yes (Other)
  Sender: FDA-Public Use
  Company Number: US-BRISTOL-MYERS SQUIBB COMPANY-15993934

PATIENT
  Age: 51 Year
  Sex: Female

DRUGS (3)
  1. AVASTIN [Suspect]
     Indication: LUNG NEOPLASM MALIGNANT
     Dates: end: 20100727
  2. ERBITUX [Suspect]
     Indication: LUNG NEOPLASM MALIGNANT
     Dates: end: 20100727
  3. ALIMTA [Suspect]
     Indication: LUNG NEOPLASM MALIGNANT
     Dates: start: 20091118, end: 20100727

REACTIONS (1)
  - NEOPLASM MALIGNANT [None]
